FAERS Safety Report 4400692-7 (Version None)
Quarter: 2004Q3

REPORT INFORMATION
  Report Type: 
  Country: None (occurrence: None)
  Receive Date: 20040714
  Receipt Date: 20040628
  Transmission Date: 20050211
  Serious: Yes (Hospitalization)
  Sender: FDA-Public Use
  Company Number: A01200403042

PATIENT
  Age: 28 Year
  Sex: Male

DRUGS (8)
  1. PLAQUENIL [Suspect]
     Indication: ARTHRITIS
     Dosage: 400 MG OD
     Dates: start: 20040511
  2. PLAQUENIL [Suspect]
     Indication: PSORIASIS
     Dosage: 400 MG OD
     Dates: start: 20040511
  3. INFLIXIMAB - POWDER [Suspect]
     Indication: PSORIASIS
     Dosage: INTRAVENOUS NOS
     Route: 042
     Dates: start: 20030423
  4. LYOPHILIZED POWDER - POWDER [Suspect]
     Indication: PSORIASIS
     Dosage: INTRAVENOUS NOS
     Route: 042
     Dates: start: 20030423
  5. TYLENOL [Concomitant]
  6. NEORAL [Concomitant]
  7. PREDNISONE [Concomitant]
  8. PANTOLOC (PANTOPRAZOLE SODIUM) [Concomitant]

REACTIONS (1)
  - ERYTHEMA MULTIFORME [None]
